FAERS Safety Report 6203741-9 (Version None)
Quarter: 2009Q2

REPORT INFORMATION
  Report Type: 
  Country: None (occurrence: None)
  Receive Date: 20090526
  Receipt Date: 20090526
  Transmission Date: 20091009
  Serious: Yes (Hospitalization)
  Sender: FDA-Public Use
  Company Number: None

PATIENT
  Age: 47 Year
  Sex: Male

DRUGS (2)
  1. ZOFRAN [Suspect]
     Indication: PROCEDURAL NAUSEA
     Dosage: 4 MG Q8H IV  (2 DOSES)
     Route: 042
     Dates: start: 20090316, end: 20090316
  2. ZOFRAN [Suspect]
     Indication: PROCEDURAL VOMITING
     Dosage: 4 MG Q8H IV  (2 DOSES)
     Route: 042
     Dates: start: 20090316, end: 20090316

REACTIONS (1)
  - EXTRAPYRAMIDAL DISORDER [None]
